FAERS Safety Report 6196416-6 (Version None)
Quarter: 2009Q2

REPORT INFORMATION
  Report Type: 
  Country: None (occurrence: None)
  Receive Date: 20090518
  Receipt Date: 20090518
  Transmission Date: 20091009
  Serious: Yes (Life-Threatening, Other)
  Sender: FDA-Public Use
  Company Number: None

PATIENT
  Age: 51 Year
  Sex: Male
  Weight: 99.7913 kg

DRUGS (1)
  1. LEXAPRO [Suspect]
     Indication: DEPRESSION
     Dosage: 1 DAILY PO
     Route: 048
     Dates: start: 20070101, end: 20090501

REACTIONS (5)
  - DIZZINESS [None]
  - FAMILY STRESS [None]
  - HEADACHE [None]
  - LOSS OF EMPLOYMENT [None]
  - NAUSEA [None]
